FAERS Safety Report 6728360-7 (Version None)
Quarter: 2010Q2

REPORT INFORMATION
  Report Type: 
  Country: None (occurrence: None)
  Receive Date: 20100517
  Receipt Date: 20100502
  Transmission Date: 20101027
  Serious: Yes (Other)
  Sender: FDA-Public Use
  Company Number: PHHY2010ES28218

PATIENT
  Age: 55 Year
  Sex: Female

DRUGS (2)
  1. TASIGNA [Suspect]
     Indication: ACUTE MYELOID LEUKAEMIA
     Route: 048
  2. PREDNISONE [Concomitant]
     Dosage: 20MG/48H

REACTIONS (2)
  - ACUTE MYOCARDIAL INFARCTION [None]
  - ARTERIOSCLEROSIS [None]
